FAERS Safety Report 15929407 (Version 1)
Quarter: 2019Q1

REPORT INFORMATION
  Report Type: Spontaneous
  Country: US (occurrence: US)
  Receive Date: 20190206
  Receipt Date: 20190206
  Transmission Date: 20190417
  Serious: No
  Sender: FDA-Public Use
  Company Number: US-SA-2019SA030560

PATIENT
  Sex: Female

DRUGS (1)
  1. KEVZARA [Suspect]
     Active Substance: SARILUMAB
     Dosage: UNK DF
     Route: 058
     Dates: start: 20190115

REACTIONS (3)
  - Malaise [Unknown]
  - Cough [Unknown]
  - Upper respiratory tract congestion [Unknown]
